FAERS Safety Report 6949026-4 (Version None)
Quarter: 2010Q3

REPORT INFORMATION
  Report Type: 
  Country: None (occurrence: None)
  Receive Date: 20100828
  Receipt Date: 20091208
  Transmission Date: 20110219
  Serious: No
  Sender: FDA-Public Use
  Company Number: US-ABBOTT-09P-163-0613055-00

PATIENT
  Sex: Male
  Weight: 107.6 kg

DRUGS (10)
  1. NIASPAN [Suspect]
     Indication: BLOOD TRIGLYCERIDES INCREASED
     Dates: start: 20070101
  2. NIASPAN [Suspect]
     Indication: LOW DENSITY LIPOPROTEIN INCREASED
     Dates: start: 20091101
  3. NIASPAN [Suspect]
     Indication: HIGH DENSITY LIPOPROTEIN DECREASED
  4. SIMCOR [Suspect]
     Indication: BLOOD TRIGLYCERIDES INCREASED
     Dates: end: 20091101
  5. ASPIRIN [Concomitant]
     Indication: PRODUCT USED FOR UNKNOWN INDICATION
  6. FLOMAX [Concomitant]
     Indication: PRODUCT USED FOR UNKNOWN INDICATION
  7. CHANTIX [Concomitant]
     Indication: PRODUCT USED FOR UNKNOWN INDICATION
  8. CRESTOR [Concomitant]
     Indication: BLOOD TRIGLYCERIDES INCREASED
  9. CRESTOR [Concomitant]
     Indication: LOW DENSITY LIPOPROTEIN INCREASED
  10. CRESTOR [Concomitant]
     Indication: HIGH DENSITY LIPOPROTEIN DECREASED

REACTIONS (4)
  - FLUSHING [None]
  - PAIN IN EXTREMITY [None]
  - SKIN BURNING SENSATION [None]
  - URTICARIA [None]
